FAERS Safety Report 10776953 (Version 2)
Quarter: 2015Q1

REPORT INFORMATION
  Report Type: Report from Study
  Country: BR (occurrence: BR)
  Receive Date: 20150209
  Receipt Date: 20150218
  Transmission Date: 20150721
  Serious: Yes (Other)
  Sender: FDA-Public Use
  Company Number: PHHY2015BR013296

PATIENT
  Age: 64 Year
  Sex: Female
  Weight: 80 kg

DRUGS (2)
  1. EXFORGE HCT [Suspect]
     Active Substance: AMLODIPINE BESYLATE\HYDROCHLOROTHIAZIDE\VALSARTAN
     Dosage: 0.5 DF, QD
     Route: 048
     Dates: end: 20150212
  2. EXFORGE HCT [Suspect]
     Active Substance: AMLODIPINE BESYLATE\HYDROCHLOROTHIAZIDE\VALSARTAN
     Indication: HYPERTENSION
     Dosage: 1 DF, QD
     Route: 048
     Dates: start: 201411

REACTIONS (14)
  - Skin discolouration [Recovering/Resolving]
  - Hot flush [Not Recovered/Not Resolved]
  - Hypoaesthesia [Recovering/Resolving]
  - Malaise [Recovering/Resolving]
  - Drug intolerance [Recovering/Resolving]
  - Cerebrovascular accident [Recovering/Resolving]
  - Effusion [Recovering/Resolving]
  - Swelling [Recovering/Resolving]
  - Off label use [Unknown]
  - Oedema peripheral [Recovering/Resolving]
  - Formication [Recovering/Resolving]
  - Wrong technique in drug usage process [Unknown]
  - Burning sensation [Recovering/Resolving]
  - Blood pressure increased [Unknown]

NARRATIVE: CASE EVENT DATE: 20141231
